FAERS Safety Report 15113647 (Version 2)
Quarter: 2019Q2

REPORT INFORMATION
  Report Type: Spontaneous
  Country: FR (occurrence: FR)
  Receive Date: 20180706
  Receipt Date: 20190402
  Transmission Date: 20190711
  Serious: Yes (Death, Life-Threatening, Other)
  Sender: FDA-Public Use
  Company Number: FR-ACCORD-069147

PATIENT
  Age: 16 Year
  Sex: Male

DRUGS (13)
  1. VISMODEGIB. [Suspect]
     Active Substance: VISMODEGIB
     Indication: MEDULLOBLASTOMA RECURRENT
     Dosage: 150 MG, QD
     Route: 048
     Dates: start: 20150128
  2. ETOPOSIDE. [Suspect]
     Active Substance: ETOPOSIDE
     Indication: METASTASES TO BONE MARROW
     Dates: start: 201212
  3. TEMOZOLOMIDE. [Suspect]
     Active Substance: TEMOZOLOMIDE
     Indication: METASTASES TO BONE
     Dosage: 150 MG/M2, DAILY, FIRST CYCLE
     Route: 048
  4. CELECOXIB. [Suspect]
     Active Substance: CELECOXIB
     Indication: PRODUCT USED FOR UNKNOWN INDICATION
     Dates: start: 201212
  5. SONIDEGIB [Suspect]
     Active Substance: SONIDEGIB
     Indication: MEDULLOBLASTOMA RECURRENT
     Dosage: 400 MG, QD 1 DAY INTERVAL
     Dates: start: 20160909
  6. CARBOPLATIN. [Suspect]
     Active Substance: CARBOPLATIN
     Indication: METASTASES TO BONE
  7. CISPLATIN. [Suspect]
     Active Substance: CISPLATIN
     Indication: METASTASES TO BONE MARROW
  8. MORPHINE [Concomitant]
     Active Substance: MORPHINE
     Indication: PAIN
  9. IRINOTECAN [Suspect]
     Active Substance: IRINOTECAN
     Indication: METASTASES TO BONE MARROW
  10. THIOTEPA. [Suspect]
     Active Substance: THIOTEPA
     Indication: METASTASES TO BONE MARROW
  11. CYCLOPHOSPHAMIDE/CYCLOPHOSPHAMIDE MONOHYDRATE [Suspect]
     Active Substance: CYCLOPHOSPHAMIDE
     Indication: METASTASES TO BONE MARROW
     Dates: end: 201212
  12. ITRACONAZOLE. [Suspect]
     Active Substance: ITRACONAZOLE
     Indication: MEDULLOBLASTOMA RECURRENT
     Dosage: 150 MG, BID
     Dates: start: 201510
  13. BUSULFAN. [Suspect]
     Active Substance: BUSULFAN
     Indication: METASTASES TO BONE MARROW

REACTIONS (16)
  - Drug ineffective [Fatal]
  - Vomiting [Fatal]
  - Acquired gene mutation [Fatal]
  - Alopecia [Fatal]
  - Urinary retention [Fatal]
  - Disease recurrence [Fatal]
  - Blood creatine phosphokinase increased [Fatal]
  - Diarrhoea [Fatal]
  - Hypoaesthesia [Fatal]
  - Muscle spasms [Fatal]
  - Pain [Fatal]
  - Dysgeusia [Fatal]
  - Disease progression [Fatal]
  - C-reactive protein increased [Fatal]
  - Paraparesis [Fatal]
  - Therapeutic product effect incomplete [Fatal]

NARRATIVE: CASE EVENT DATE: 20161102
